FAERS Safety Report 8397093-6 (Version None)
Quarter: 2012Q2

REPORT INFORMATION
  Report Type: 
  Country: None (occurrence: None)
  Receive Date: 20120530
  Receipt Date: 20120515
  Transmission Date: 20120825
  Serious: Yes (Other)
  Sender: FDA-Public Use
  Company Number: CHPA2012US011095

PATIENT
  Sex: Female

DRUGS (1)
  1. PHENYLEPHRINE HCL [Suspect]
     Indication: NASAL CONGESTION
     Dosage: 1 SPRAY IN EACH NOSTRIL, BID
     Route: 045
     Dates: start: 19820101

REACTIONS (3)
  - UTERINE POLYP [None]
  - INCORRECT DRUG ADMINISTRATION DURATION [None]
  - UNDERDOSE [None]
